FAERS Safety Report 11314884 (Version 1)
Quarter: 2015Q3

REPORT INFORMATION
  Report Type: Other
  Country: GB (occurrence: GB)
  Receive Date: 20150727
  Receipt Date: 20150727
  Transmission Date: 20151125
  Serious: Yes (Life-Threatening, Disabling, Other)
  Sender: FDA-Public Use
  Company Number: GB-MYLANLABS-2015M1023827

PATIENT

DRUGS (16)
  1. DEXAMETHASONE SODIUM PHOSPHATE. [Concomitant]
     Active Substance: DEXAMETHASONE SODIUM PHOSPHATE
     Dosage: UNK
  2. FOLINIC ACID [Concomitant]
     Active Substance: LEUCOVORIN
     Dosage: UNK
  3. TEICOPLANIN [Concomitant]
     Active Substance: TEICOPLANIN
     Dosage: UNK
  4. DOXORUBICIN [Suspect]
     Active Substance: DOXORUBICIN
     Indication: OSTEOSARCOMA
     Dosage: UNK
  5. MIFAMURTIDE SODIUM [Interacting]
     Active Substance: MIFAMURTIDE
     Indication: ADJUVANT THERAPY
     Dosage: 2 MG/M2, UNK
     Route: 042
     Dates: start: 20150205, end: 20150428
  6. APREPITANT. [Concomitant]
     Active Substance: APREPITANT
     Dosage: UNK
  7. LORAZEPAM. [Concomitant]
     Active Substance: LORAZEPAM
     Dosage: UNK
  8. MIFAMURTIDE SODIUM [Interacting]
     Active Substance: MIFAMURTIDE
     Dosage: 2 MG/M2, QW
     Route: 042
     Dates: start: 20150428, end: 20150701
  9. CYCLIZINE [Concomitant]
     Active Substance: CYCLIZINE
     Dosage: UNK
  10. MEROPENEM. [Concomitant]
     Active Substance: MEROPENEM
     Dosage: UNK
  11. METHOTREXATE [Concomitant]
     Active Substance: METHOTREXATE
     Indication: OSTEOSARCOMA
     Dosage: UNK
  12. LEVOMEPROMAZINE [Concomitant]
     Active Substance: LEVOMEPROMAZINE
     Dosage: UNK
  13. ONDANSETRON [Concomitant]
     Active Substance: ONDANSETRON
     Dosage: UNK
  14. PARACETAMOL [Concomitant]
     Active Substance: ACETAMINOPHEN
     Dosage: UNK
  15. CISPLATIN. [Concomitant]
     Active Substance: CISPLATIN
     Indication: OSTEOSARCOMA
     Dosage: UNK
  16. IBUPROFEN. [Concomitant]
     Active Substance: IBUPROFEN
     Dosage: UNK

REACTIONS (3)
  - Cardiac function test abnormal [Not Recovered/Not Resolved]
  - Drug interaction [Unknown]
  - Cardiotoxicity [Not Recovered/Not Resolved]

NARRATIVE: CASE EVENT DATE: 20150603
